FAERS Safety Report 6187674-2 (Version None)
Quarter: 2009Q2

REPORT INFORMATION
  Report Type: 
  Country: None (occurrence: None)
  Receive Date: 20090511
  Receipt Date: 20090427
  Transmission Date: 20091009
  Serious: Yes (Other)
  Sender: FDA-Public Use
  Company Number: 2009AL002734

PATIENT
  Age: 86 Year
  Sex: Female

DRUGS (2)
  1. DICLOFENAC SODIUM [Suspect]
     Indication: DRUG USE FOR UNKNOWN INDICATION
     Dosage: 75 MG; IM
     Route: 030
  2. PERMADOZE [Concomitant]

REACTIONS (6)
  - HYPERHIDROSIS [None]
  - HYPERTHERMIA [None]
  - OEDEMA [None]
  - PAIN [None]
  - RASH [None]
  - TACHYCARDIA [None]
